FAERS Safety Report 21459433 (Version 2)
Quarter: 2023Q1

REPORT INFORMATION
  Report Type: Spontaneous
  Country: US (occurrence: US)
  Receive Date: 20221014
  Receipt Date: 20230208
  Transmission Date: 20230418
  Serious: Yes (Other)
  Sender: FDA-Public Use
  Company Number: US-AMGEN-USASP2022174395

PATIENT
  Age: 73 Year
  Sex: Female

DRUGS (10)
  1. PROLIA [Suspect]
     Active Substance: DENOSUMAB
     Indication: Osteopenia
     Dosage: 60 MILLIGRAM/PER MILLILITRE, Q6MO
     Route: 058
     Dates: start: 20210409
  2. CALCIUM [Concomitant]
     Active Substance: CALCIUM
     Dosage: 1200 MILLIGRAM, QD
     Route: 065
  3. CLONAZEPAM [Concomitant]
     Active Substance: CLONAZEPAM
     Route: 065
  4. LEVOTHYROXINE [Concomitant]
     Active Substance: LEVOTHYROXINE
     Indication: Thyroid disorder
     Dosage: UNK
     Route: 065
  5. LIOTHYRONINE [Concomitant]
     Active Substance: LIOTHYRONINE
     Indication: Thyroid disorder
     Route: 065
  6. PROBIOTICS NOS [Concomitant]
     Active Substance: PROBIOTICS NOS
     Route: 065
  7. VITAMIN C [Concomitant]
     Active Substance: ASCORBIC ACID
     Dosage: 4000 MILLIGRAM
     Route: 065
  8. VITAMIN D [Concomitant]
     Active Substance: VITAMIN D NOS
     Route: 065
  9. XELJANZ [Concomitant]
     Active Substance: TOFACITINIB CITRATE
     Indication: Arthritis
     Route: 065
  10. ZOLPIDEM [Concomitant]
     Active Substance: ZOLPIDEM TARTRATE
     Route: 065

REACTIONS (5)
  - Staphylococcal infection [Recovered/Resolved]
  - Purpura [Recovering/Resolving]
  - Off label use [Unknown]
  - Gingivitis [Unknown]
  - Pain in extremity [Not Recovered/Not Resolved]

NARRATIVE: CASE EVENT DATE: 20210101
